FAERS Safety Report 20405414 (Version 1)
Quarter: 2022Q1

REPORT INFORMATION
  Report Type: Spontaneous
  Country: CA (occurrence: None)
  Receive Date: 20220130
  Receipt Date: 20220130
  Transmission Date: 20220423
  Serious: Yes (Other)
  Sender: FDA-Public Use
  Company Number: None

PATIENT
  Age: 15 Year
  Sex: Male
  Weight: 46.8 kg

DRUGS (1)
  1. HEAD AND SHOULDERS [Suspect]
     Active Substance: PYRITHIONE ZINC
     Indication: Product used for unknown indication
     Dosage: OTHER FREQUENCY : USE3 TIMES A WEEK;?OTHER ROUTE : SHAMPOO;?
     Route: 050
     Dates: start: 20211220, end: 20220116

REACTIONS (4)
  - Rash [None]
  - Illness [None]
  - Vomiting [None]
  - Skin irritation [None]

NARRATIVE: CASE EVENT DATE: 20220116
